FAERS Safety Report 10542970 (Version 2)
Quarter: 2014Q4

REPORT INFORMATION
  Report Type: Spontaneous
  Country: JP (occurrence: JP)
  Receive Date: 20141027
  Receipt Date: 20141130
  Transmission Date: 20150529
  Serious: Yes (Other)
  Sender: FDA-Public Use
  Company Number: PHHY2014JP139378

PATIENT
  Sex: Female

DRUGS (6)
  1. LEVODOPA [Concomitant]
     Active Substance: LEVODOPA
     Indication: PRODUCT USED FOR UNKNOWN INDICATION
     Dosage: UNK
     Route: 065
  2. BI SIFROL [Suspect]
     Active Substance: PRAMIPEXOLE
     Indication: PRODUCT USED FOR UNKNOWN INDICATION
     Dosage: UNK
     Route: 048
  3. COMTAN [Suspect]
     Active Substance: ENTACAPONE
     Indication: PARKINSON^S DISEASE
     Dosage: UNK
     Route: 048
  4. LEVODOPA [Concomitant]
     Active Substance: LEVODOPA
     Dosage: UNK
     Route: 065
  5. COMTAN [Suspect]
     Active Substance: ENTACAPONE
     Dosage: UNK
     Route: 048
  6. BI SIFROL [Suspect]
     Active Substance: PRAMIPEXOLE
     Dosage: UNK
     Route: 048

REACTIONS (4)
  - Intestinal perforation [Recovered/Resolved]
  - Appendicitis [Unknown]
  - Dropped head syndrome [Recovering/Resolving]
  - Abdominal pain [Recovered/Resolved]
